FAERS Safety Report 5365965-2 (Version None)
Quarter: 2007Q2

REPORT INFORMATION
  Report Type: 
  Country: None (occurrence: None)
  Receive Date: 20070611
  Receipt Date: 20070323
  Transmission Date: 20071010
  Serious: Yes (Hospitalization)
  Sender: FDA-Public Use
  Company Number: USA-2007-0026878

PATIENT
  Age: 26 Year
  Sex: Female
  Weight: 68 kg

DRUGS (6)
  1. OXYCONTIN [Suspect]
     Indication: PAIN
     Dosage: ORAL
     Route: 048
  2. KADIAN [Suspect]
     Indication: PAIN
     Dosage: 80 MG, BID, ORAL
     Route: 048
     Dates: start: 20070221
  3. EFFEXOR [Suspect]
     Indication: DEPRESSION
     Dosage: ORAL
     Route: 048
  4. LUNESTA [Concomitant]
  5. NEURONTIN [Concomitant]
  6. CODEINE SUL TAB [Concomitant]

REACTIONS (14)
  - ALCOHOL USE [None]
  - CHILLS [None]
  - DEHYDRATION [None]
  - DEPRESSED MOOD [None]
  - FATIGUE [None]
  - GLASGOW COMA SCALE ABNORMAL [None]
  - HYPOVENTILATION [None]
  - HYPOXIA [None]
  - LETHARGY [None]
  - LOSS OF CONSCIOUSNESS [None]
  - MULTIPLE DRUG OVERDOSE [None]
  - OXYGEN SATURATION DECREASED [None]
  - SINUS ARRHYTHMIA [None]
  - VOMITING [None]
